FAERS Safety Report 20567330 (Version 2)
Quarter: 2022Q2

REPORT INFORMATION
  Report Type: Spontaneous
  Country: GR (occurrence: GR)
  Receive Date: 20220308
  Receipt Date: 20220408
  Transmission Date: 20220721
  Serious: Yes (Other)
  Sender: FDA-Public Use
  Company Number: GR-IFET-0122138

PATIENT
  Sex: Female

DRUGS (4)
  1. HYDROCORTISONE [Suspect]
     Active Substance: HYDROCORTISONE
     Indication: Polyglandular autoimmune syndrome type I
     Dosage: UNK
  2. CALCIUM [Suspect]
     Active Substance: CALCIUM
     Indication: Polyglandular autoimmune syndrome type I
     Dosage: UNK
  3. FLUDROCORTISONE [Suspect]
     Active Substance: FLUDROCORTISONE
     Indication: Multiple endocrine neoplasia
     Dosage: UNK
  4. ALFACALCIDOL [Suspect]
     Active Substance: ALFACALCIDOL
     Indication: Polyglandular autoimmune syndrome type I
     Dosage: UNK

REACTIONS (8)
  - Renal failure [Recovered/Resolved]
  - Autoimmune thyroiditis [Unknown]
  - Nephrocalcinosis [Recovered/Resolved]
  - Onychomycosis [Unknown]
  - Amenorrhoea [Unknown]
  - Ovarian cyst [Recovered/Resolved]
  - Ovarian disorder [Recovered/Resolved]
  - Eyelash changes [Unknown]
